FAERS Safety Report 14376955 (Version 2)
Quarter: 2018Q1

REPORT INFORMATION
  Report Type: Spontaneous
  Country: US (occurrence: US)
  Receive Date: 20180111
  Receipt Date: 20180111
  Transmission Date: 20180509
  Serious: No
  Sender: FDA-Public Use
  Company Number: US-DRREDDYS-USA/USA/16/0085236

PATIENT
  Age: 68 Year
  Sex: Female

DRUGS (2)
  1. HABITROL [Suspect]
     Active Substance: NICOTINE
     Indication: SMOKING CESSATION THERAPY
     Route: 062
     Dates: start: 201607
  2. HABITROL [Suspect]
     Active Substance: NICOTINE
     Route: 062

REACTIONS (4)
  - Product quality issue [Unknown]
  - Overdose [Unknown]
  - Treatment noncompliance [Unknown]
  - Incorrect drug administration duration [Unknown]
